FAERS Safety Report 8114074-8 (Version None)
Quarter: 2012Q1

REPORT INFORMATION
  Report Type: 
  Country: None (occurrence: None)
  Receive Date: 20120203
  Receipt Date: 20120127
  Transmission Date: 20120608
  Serious: Yes (Hospitalization)
  Sender: FDA-Public Use
  Company Number: US-ASTRAZENECA-2012SE06280

PATIENT
  Age: 52 Year
  Sex: Female

DRUGS (2)
  1. ZOMIG [Suspect]
     Route: 048
  2. TORADOL [Suspect]
     Route: 065

REACTIONS (4)
  - MIGRAINE [None]
  - DRUG INEFFECTIVE [None]
  - DYSARTHRIA [None]
  - RETROGRADE AMNESIA [None]
